FAERS Safety Report 23175943 (Version 4)
Quarter: 2023Q4

REPORT INFORMATION
  Report Type: Report from Study
  Country: NL (occurrence: NL)
  Receive Date: 20231113
  Receipt Date: 20231226
  Transmission Date: 20240109
  Serious: Yes (Other)
  Sender: FDA-Public Use
  Company Number: NL-ABBVIE-5491390

PATIENT
  Age: 82 Year
  Sex: Male

DRUGS (10)
  1. CARBIDOPA\LEVODOPA [Suspect]
     Active Substance: CARBIDOPA\LEVODOPA
     Indication: Parkinson^s disease
     Route: 050
     Dates: end: 20230620
  2. CARBIDOPA\LEVODOPA [Suspect]
     Active Substance: CARBIDOPA\LEVODOPA
     Route: 050
  3. CARBIDOPA\LEVODOPA [Suspect]
     Active Substance: CARBIDOPA\LEVODOPA
     Dosage: REMAINS AT 16 HOURS
     Route: 050
     Dates: start: 20231108, end: 20231219
  4. CARBIDOPA\LEVODOPA [Suspect]
     Active Substance: CARBIDOPA\LEVODOPA
     Dosage: MD 17.5 ML; CD 5.2 ML/H; ED 3.0 ML?REMAINS AT 16 HOURS
     Route: 050
     Dates: start: 20230627, end: 20231108
  5. CARBIDOPA\LEVODOPA [Suspect]
     Active Substance: CARBIDOPA\LEVODOPA
     Dosage: MD 17.5 ML; CD 5.5 ML/H; ED 3.0 ML?REMAINS AT 16 HOURS
     Route: 050
     Dates: start: 20231219
  6. CARBIDOPA\LEVODOPA [Suspect]
     Active Substance: CARBIDOPA\LEVODOPA
     Dosage: MD 14.5 ML; CD 5.2 ML/H; ED 4.0 ML?REMAINS AT 16 HOURS
     Route: 050
     Dates: start: 20230620, end: 20230627
  7. MOVICOLON [Concomitant]
     Active Substance: POLYETHYLENE GLYCOL 3350\POTASSIUM CHLORIDE\SODIUM BICARBONATE\SODIUM CHLORIDE
     Indication: Bowel movement irregularity
     Dosage: 2 SACHET
  8. NEUPRO [Concomitant]
     Active Substance: ROTIGOTINE
     Indication: Parkinson^s disease
     Dosage: FREQUENCY TEXT: WHEN DISCONNECTING THE PUMP
  9. SINEMET [Concomitant]
     Active Substance: CARBIDOPA\LEVODOPA
     Indication: Parkinson^s disease
     Dosage: FREQUENCY TEXT: WHEN DISCONNECTING THE PUMP
  10. POLYETHYLENE GLYCOLS [Concomitant]
     Active Substance: POLYETHYLENE GLYCOLS
     Indication: Constipation

REACTIONS (23)
  - Skin cancer [Recovered/Resolved]
  - Freezing phenomenon [Not Recovered/Not Resolved]
  - On and off phenomenon [Not Recovered/Not Resolved]
  - Therapeutic product effect variable [Not Recovered/Not Resolved]
  - Affective disorder [Recovering/Resolving]
  - Nocturia [Not Recovered/Not Resolved]
  - Balance disorder [Not Recovered/Not Resolved]
  - Middle insomnia [Not Recovered/Not Resolved]
  - Speech disorder [Not Recovered/Not Resolved]
  - Fall [Not Recovered/Not Resolved]
  - Gait disturbance [Not Recovered/Not Resolved]
  - Mobility decreased [Not Recovered/Not Resolved]
  - Muscle rigidity [Not Recovered/Not Resolved]
  - Parkinsonian gait [Not Recovered/Not Resolved]
  - Sensory disturbance [Not Recovered/Not Resolved]
  - Reduced facial expression [Not Recovered/Not Resolved]
  - Muscle spasms [Not Recovered/Not Resolved]
  - Poor quality sleep [Not Recovered/Not Resolved]
  - Postoperative wound infection [Not Recovered/Not Resolved]
  - Dizziness [Recovered/Resolved]
  - Anxiety [Not Recovered/Not Resolved]
  - Dyskinesia [Not Recovered/Not Resolved]
  - Agitation [Not Recovered/Not Resolved]

NARRATIVE: CASE EVENT DATE: 20231201
